FAERS Safety Report 4471739-7 (Version None)
Quarter: 2004Q4

REPORT INFORMATION
  Report Type: 
  Country: None (occurrence: None)
  Receive Date: 20041006
  Receipt Date: 20040924
  Transmission Date: 20050328
  Serious: Yes (Hospitalization)
  Sender: FDA-Public Use
  Company Number: 2004JP001433

PATIENT
  Age: 46 Year
  Sex: Female

DRUGS (6)
  1. PROGRAF [Suspect]
     Indication: BONE MARROW TRANSPLANT
     Dosage: SEE IMAGE
     Dates: start: 20031201, end: 20040719
  2. PROGRAF [Suspect]
     Indication: BONE MARROW TRANSPLANT
     Dosage: SEE IMAGE
     Dates: start: 20040720, end: 20040721
  3. PROGRAF [Suspect]
     Indication: BONE MARROW TRANSPLANT
     Dosage: SEE IMAGE
     Dates: start: 20040724, end: 20040809
  4. PENTAZOCINE LACTATE [Concomitant]
  5. SULPERAZON (CEFOPERAZONE SODIUM, SULBACTAM SODIUM) INJECTION [Concomitant]
  6. OMEPRAZOLE [Concomitant]

REACTIONS (9)
  - ASTHENIA [None]
  - CHOLECYSTITIS [None]
  - CLONIC CONVULSION [None]
  - DRUG LEVEL INCREASED [None]
  - FALL [None]
  - HYPERTENSION [None]
  - LEUKOENCEPHALOPATHY [None]
  - PANCREATITIS [None]
  - TACHYCARDIA [None]
